FAERS Safety Report 16333617 (Version 1)
Quarter: 2019Q2

REPORT INFORMATION
  Report Type: Spontaneous
  Country: CH (occurrence: CH)
  Receive Date: 20190520
  Receipt Date: 20190520
  Transmission Date: 20190711
  Serious: Yes (Hospitalization)
  Sender: FDA-Public Use
  Company Number: CH-OTSUKA-2019_019859

PATIENT
  Age: 36 Year
  Sex: Female

DRUGS (9)
  1. VALIUM [Suspect]
     Active Substance: DIAZEPAM
     Indication: MANIA
     Dosage: 10 MG, QID
     Route: 048
     Dates: start: 20190501, end: 20190503
  2. DEPAKINE [Suspect]
     Active Substance: VALPROATE SODIUM
     Indication: MANIA
     Dosage: 6250 MG, QD (20.83 ML OF 300 MG/ML) (IN THE MORNING)
     Route: 048
     Dates: start: 20190503, end: 20190503
  3. TEMESTA [Concomitant]
     Indication: PRODUCT USED FOR UNKNOWN INDICATION
     Dosage: 2.5 MG, QID
     Route: 065
  4. DEPAKINE [Suspect]
     Active Substance: VALPROATE SODIUM
     Dosage: 60 MG/ML
     Route: 065
     Dates: start: 20190429
  5. DEPAKINE [Suspect]
     Active Substance: VALPROATE SODIUM
     Dosage: 1250 MG, BID
     Route: 065
     Dates: start: 20190502
  6. STILNOX [Suspect]
     Active Substance: ZOLPIDEM TARTRATE
     Indication: MANIA
     Dosage: 10 MG, QD
     Route: 048
     Dates: start: 20190501, end: 20190503
  7. DEPAKINE CHRONO [Suspect]
     Active Substance: VALPROATE SODIUM
     Indication: MANIA
     Dosage: UNK
     Route: 065
     Dates: start: 20190426
  8. IMOVANE [Concomitant]
     Active Substance: ZOPICLONE
     Indication: PRODUCT USED FOR UNKNOWN INDICATION
     Dosage: 7.5 MG, UNK
     Route: 065
  9. ABILIFY [Suspect]
     Active Substance: ARIPIPRAZOLE
     Indication: MANIA
     Dosage: 15 MG, QD
     Route: 048
     Dates: start: 20190415, end: 20190503

REACTIONS (6)
  - Product preparation error [Unknown]
  - Dysarthria [Recovered/Resolved]
  - Tachycardia [Unknown]
  - Accidental overdose [Unknown]
  - Sedation complication [Recovered/Resolved]
  - Gait disturbance [Unknown]

NARRATIVE: CASE EVENT DATE: 20190503
